FAERS Safety Report 24177174 (Version 1)
Quarter: 2024Q3

REPORT INFORMATION
  Report Type: Spontaneous
  Country: US (occurrence: US)
  Receive Date: 20240806
  Receipt Date: 20240806
  Transmission Date: 20241017
  Serious: Yes (Other)
  Sender: AMNEAL
  Company Number: US-AMNEAL-2024-AMRX-02094

PATIENT
  Age: 41 Year
  Sex: Male
  Weight: 62 kg

DRUGS (1)
  1. BACLOFEN [Suspect]
     Active Substance: BACLOFEN
     Indication: Muscle spasticity
     Dosage: 1000 MCG/24
     Route: 065

REACTIONS (7)
  - Muscle spasticity [Recovered/Resolved]
  - Device occlusion [Unknown]
  - Musculoskeletal stiffness [Unknown]
  - Hypokinesia [Unknown]
  - Incontinence [Unknown]
  - Device issue [Unknown]
  - Drug ineffective [Unknown]

NARRATIVE: CASE EVENT DATE: 20240604
